FAERS Safety Report 24306554 (Version 1)
Quarter: 2024Q3

REPORT INFORMATION
  Report Type: Spontaneous
  Country: CN (occurrence: CN)
  Receive Date: 20240911
  Receipt Date: 20240911
  Transmission Date: 20241016
  Serious: Yes (Hospitalization, Other)
  Sender: STRIDES
  Company Number: CN-STRIDES ARCOLAB LIMITED-2024SP011403

PATIENT
  Age: 3 Decade
  Sex: Female

DRUGS (6)
  1. MYCOPHENOLATE MOFETIL [Suspect]
     Active Substance: MYCOPHENOLATE MOFETIL
     Indication: Autoimmune haemolytic anaemia
     Dosage: UNK
     Route: 065
  2. MYCOPHENOLATE MOFETIL [Suspect]
     Active Substance: MYCOPHENOLATE MOFETIL
     Indication: Congenital thrombocyte disorder
  3. AZATHIOPRINE [Suspect]
     Active Substance: AZATHIOPRINE
     Indication: Autoimmune haemolytic anaemia
     Dosage: UNK
     Route: 065
  4. AZATHIOPRINE [Suspect]
     Active Substance: AZATHIOPRINE
     Indication: Congenital thrombocyte disorder
  5. METHYLPREDNISOLONE [Suspect]
     Active Substance: METHYLPREDNISOLONE
     Indication: Autoimmune haemolytic anaemia
     Dosage: UNK
     Route: 065
  6. METHYLPREDNISOLONE [Suspect]
     Active Substance: METHYLPREDNISOLONE
     Indication: Congenital thrombocyte disorder

REACTIONS (5)
  - Osteoporosis [Unknown]
  - Cushing^s syndrome [Unknown]
  - Drug-induced liver injury [Unknown]
  - Treatment failure [Unknown]
  - Off label use [Unknown]
